FAERS Safety Report 5092331-X (Version None)
Quarter: 2006Q3

REPORT INFORMATION
  Report Type: 
  Country: None (occurrence: None)
  Receive Date: 20060825
  Receipt Date: 20060810
  Transmission Date: 20061208
  Serious: Yes (Hospitalization)
  Sender: FDA-Public Use
  Company Number: US200608002510

PATIENT
  Age: 68 Year
  Sex: Female

DRUGS (6)
  1. CIALIS [Suspect]
     Indication: SCLERODERMA
     Dosage: 10 MG,
  2. TRAZODONE HCL [Concomitant]
  3. PREDNISONE TAB [Concomitant]
  4. METHOTREXATE [Concomitant]
  5. NIFEDIPINE [Concomitant]
  6. FOLIC ACID [Concomitant]

REACTIONS (2)
  - CARDIAC TAMPONADE [None]
  - DYSPNOEA [None]
